FAERS Safety Report 8796636 (Version 3)
Quarter: 2012Q4

REPORT INFORMATION
  Report Type: 
  Country: IT (occurrence: IT)
  Receive Date: 20120919
  Receipt Date: 20121029
  Transmission Date: 20130627
  Serious: Yes (Hospitalization)
  Sender: FDA-Public Use
  Company Number: IT-ABBOTT-12P-083-0979596-00

PATIENT
  Age: 52 Year
  Sex: Male

DRUGS (2)
  1. EN [Suspect]
     Indication: INTENTIONAL SELF-INJURY
     Dosage: Total
     Route: 048
     Dates: start: 20120911, end: 20120911
  2. RIVOTRIL [Suspect]
     Indication: INTENTIONAL SELF-INJURY
     Dosage: Total
     Route: 048
     Dates: start: 20120911, end: 20120911

REACTIONS (2)
  - Bradykinesia [Recovering/Resolving]
  - Bradyphrenia [Recovering/Resolving]
